FAERS Safety Report 6032802-2 (Version None)
Quarter: 2009Q1

REPORT INFORMATION
  Report Type: 
  Country: None (occurrence: None)
  Receive Date: 20090109
  Receipt Date: 20081229
  Transmission Date: 20090719
  Serious: Yes (Other)
  Sender: FDA-Public Use
  Company Number: JP-WATSON-2008-07535

PATIENT
  Age: 82 Year
  Sex: Male

DRUGS (1)
  1. RAPAFLO [Suspect]
     Indication: BENIGN PROSTATIC HYPERPLASIA
     Dosage: 2 DF; 1 CAPSULE BID
     Route: 048
     Dates: start: 20080120, end: 20081121

REACTIONS (1)
  - PLATELET COUNT DECREASED [None]
